FAERS Safety Report 7750369-5 (Version None)
Quarter: 2011Q3

REPORT INFORMATION
  Report Type: 
  Country: None (occurrence: None)
  Receive Date: 20110825
  Receipt Date: 20110502
  Transmission Date: 20111222
  Serious: No
  Sender: FDA-Public Use
  Company Number: 327562

PATIENT
  Age: 65 Year
  Sex: Female

DRUGS (1)
  1. VICTOZA [Suspect]
     Indication: TYPE 2 DIABETES MELLITUS
     Dosage: 1.2 MG, QD, SUBCUTANEOUS
     Route: 058
     Dates: start: 20101201

REACTIONS (6)
  - INJECTION SITE NODULE [None]
  - PAIN [None]
  - INJECTION SITE PAIN [None]
  - MUSCLE SPASMS [None]
  - HEADACHE [None]
  - DYSPHAGIA [None]
